FAERS Safety Report 17281640 (Version 1)
Quarter: 2020Q1

REPORT INFORMATION
  Report Type: Spontaneous
  Country: US (occurrence: US)
  Receive Date: 20191227
  Receipt Date: 20191227
  Transmission Date: 20200409
  Serious: No
  Sender: FDA-Public Use
  Company Number: None

PATIENT

DRUGS (1)
  1. NATPARA (PARATHYROID HORMONE) [Suspect]
     Active Substance: PARATHYROID HORMONE
     Route: 058

REACTIONS (13)
  - Vertigo [None]
  - Tetany [None]
  - Diarrhoea [None]
  - Nausea [None]
  - Recalled product administered [None]
  - Nocturia [None]
  - Fatigue [None]
  - Arthralgia [None]
  - Vomiting [None]
  - Paraesthesia [None]
  - Feeling abnormal [None]
  - Polyuria [None]
  - Blood calcium decreased [None]
